FAERS Safety Report 8278548-1 (Version None)
Quarter: 2012Q2

REPORT INFORMATION
  Report Type: 
  Country: None (occurrence: None)
  Receive Date: 20120412
  Receipt Date: 20110520
  Transmission Date: 20120825
  Serious: No
  Sender: FDA-Public Use
  Company Number: US-ASTRAZENECA-2011SE31322

PATIENT
  Age: 55 Year
  Sex: Female
  Weight: 73.5 kg

DRUGS (2)
  1. NEXIUM [Suspect]
     Route: 048
  2. BLOOD PRESSURE MEDICATION [Concomitant]
     Indication: BLOOD PRESSURE

REACTIONS (3)
  - COUGH [None]
  - LIVER DISORDER [None]
  - INCORRECT DRUG ADMINISTRATION DURATION [None]
